FAERS Safety Report 15530804 (Version 1)
Quarter: 2018Q4

REPORT INFORMATION
  Report Type: Spontaneous
  Country: US (occurrence: US)
  Receive Date: 20181018
  Receipt Date: 20181018
  Transmission Date: 20190205
  Serious: Yes (Other)
  Sender: FDA-Public Use
  Company Number: US-PRINSTON PHARMACEUTICAL INC.-2018PRN01328

PATIENT
  Sex: Male

DRUGS (6)
  1. CLONAZEPAM. [Suspect]
     Active Substance: CLONAZEPAM
     Indication: SEIZURE
  2. CLONAZEPAM (ACCORD) [Suspect]
     Active Substance: CLONAZEPAM
     Indication: SEIZURE
  3. CLONAZEPAM. [Suspect]
     Active Substance: CLONAZEPAM
     Indication: BRAIN INJURY
     Dosage: UNK
  4. CLONAZEPAM(ACTAVIS) [Suspect]
     Active Substance: CLONAZEPAM
     Indication: SEIZURE
  5. CLONAZEPAM(ACTAVIS) [Suspect]
     Active Substance: CLONAZEPAM
     Indication: BRAIN INJURY
  6. CLONAZEPAM (ACCORD) [Suspect]
     Active Substance: CLONAZEPAM
     Indication: BRAIN INJURY

REACTIONS (5)
  - Drug ineffective [Unknown]
  - Feeling abnormal [Unknown]
  - Seizure [Unknown]
  - Product substitution issue [Unknown]
  - Insomnia [Unknown]
